FAERS Safety Report 19015307 (Version 1)
Quarter: 2021Q1

REPORT INFORMATION
  Report Type: Spontaneous
  Country: FR (occurrence: FR)
  Receive Date: 20210317
  Receipt Date: 20210317
  Transmission Date: 20210420
  Serious: Yes (Hospitalization)
  Sender: FDA-Public Use
  Company Number: FR-SA-2021SA076610

PATIENT
  Age: 64 Year
  Sex: Male
  Weight: 59 kg

DRUGS (4)
  1. ZOPHREN [ONDANSETRON HYDROCHLORIDE] [Concomitant]
     Active Substance: ONDANSETRON
     Dosage: 8, MG , CYCLICAL
     Route: 048
     Dates: start: 20210210, end: 20210210
  2. PREDNISOLONE. [Concomitant]
     Active Substance: PREDNISOLONE
     Dosage: 80, MG, CYCLICAL
     Route: 048
     Dates: start: 20210210, end: 20210210
  3. FOLINATE DE CALCIUM [Concomitant]
     Active Substance: LEUCOVORIN CALCIUM
     Indication: ADENOCARCINOMA OF COLON
     Dosage: 695, MG, CYCLICAL
     Route: 042
     Dates: start: 20210210, end: 20210210
  4. ELOXATIN [Suspect]
     Active Substance: OXALIPLATIN
     Indication: ADENOCARCINOMA OF COLON
     Dosage: 73, MG, CYCLICAL
     Route: 042
     Dates: start: 20210210, end: 20210210

REACTIONS (3)
  - Arthralgia [Recovered/Resolved]
  - Cyanosis [Recovered/Resolved]
  - Tremor [Recovered/Resolved]
